FAERS Safety Report 12954547 (Version 1)
Quarter: 2016Q4

REPORT INFORMATION
  Report Type: Spontaneous
  Country: US (occurrence: US)
  Receive Date: 20161117
  Receipt Date: 20161117
  Transmission Date: 20170207
  Serious: Yes (Hospitalization)
  Sender: FDA-Public Use
  Company Number: None

PATIENT
  Age: 60 Year
  Sex: Female
  Weight: 83.6 kg

DRUGS (1)
  1. MORPHINE [Suspect]
     Active Substance: MORPHINE
     Route: 048
     Dates: end: 20160504

REACTIONS (7)
  - Urinary retention [None]
  - Dizziness [None]
  - Hypotension [None]
  - Mental status changes [None]
  - Respiratory failure [None]
  - Intentional overdose [None]
  - Pneumonia [None]

NARRATIVE: CASE EVENT DATE: 20160504
